FAERS Safety Report 6445449 (Version 2)
Quarter: 2012Q4

REPORT INFORMATION
  Report Type: 
  Country: GB (occurrence: GB)
  Receive Date: 20071019
  Receipt Date: 20120912
  Transmission Date: 20130627
  Serious: Yes (Life-Threatening, Other)
  Sender: FDA-Public Use
  Company Number: GB-PURDUE-GBR_2007_0003336

PATIENT
  Age: 36 Year
  Sex: Female
  Weight: 47 kg

DRUGS (3)
  1. MORPHINE SULFATE [Suspect]
     Indication: LABOUR PAIN
     Dosage: 10 mg, single
     Route: 030
  2. MAGNESIUM SULFATE [Suspect]
     Indication: PROTEINURIA
     Dosage: 5 gram, UNK
     Route: 065
  3. LABETALOL [Concomitant]
     Indication: HYPERTENSION
     Route: 065

REACTIONS (5)
  - Respiratory depression [Recovered/Resolved]
  - Unresponsive to stimuli [Recovered/Resolved]
  - Somnolence [Recovered/Resolved]
  - Miosis [Recovered/Resolved]
  - Exposure during pregnancy [Unknown]
